FAERS Safety Report 6070933-1 (Version None)
Quarter: 2009Q1

REPORT INFORMATION
  Report Type: 
  Country: None (occurrence: None)
  Receive Date: 20090209
  Receipt Date: 20090205
  Transmission Date: 20090719
  Serious: Yes (Death, Congenital Anomaly, Other)
  Sender: FDA-Public Use
  Company Number: US-RB-009044-09

PATIENT
  Sex: Male
  Weight: 3.36 kg

DRUGS (4)
  1. SUBOXONE [Suspect]
     Route: 060
     Dates: start: 20080104
  2. TOPAMAX [Suspect]
     Indication: MIGRAINE
     Route: 064
  3. NEURONTIN [Suspect]
     Indication: MIGRAINE
     Route: 064
  4. SEROQUEL [Suspect]
     Indication: SLEEP DISORDER
     Route: 064

REACTIONS (3)
  - DRUG EXPOSURE DURING PREGNANCY [None]
  - PORENCEPHALY [None]
  - PREMATURE LABOUR [None]
